FAERS Safety Report 5090960-0 (Version None)
Quarter: 2006Q3

REPORT INFORMATION
  Report Type: 
  Country: None (occurrence: None)
  Receive Date: 20060823
  Receipt Date: 20060809
  Transmission Date: 20061208
  Serious: Yes (Other)
  Sender: FDA-Public Use
  Company Number: US-2006-022461

PATIENT
  Age: 25 Year
  Sex: Male

DRUGS (2)
  1. BETASERON [Suspect]
     Indication: MULTIPLE SCLEROSIS
     Dosage: 8 MIU, EVERY 2D, SUBCUTANEOUS
     Route: 058
     Dates: start: 20060615
  2. XANAX [Concomitant]

REACTIONS (6)
  - DEPRESSED MOOD [None]
  - DRUG INEFFECTIVE [None]
  - INJECTION SITE PAIN [None]
  - ROAD TRAFFIC ACCIDENT [None]
  - VERTIGO [None]
  - WRONG TECHNIQUE IN DRUG USAGE PROCESS [None]
